FAERS Safety Report 17529124 (Version 1)
Quarter: 2020Q1

REPORT INFORMATION
  Report Type: Spontaneous
  Country: GB (occurrence: GB)
  Receive Date: 20200312
  Receipt Date: 20200312
  Transmission Date: 20200409
  Serious: Yes (Life-Threatening, Hospitalization)
  Sender: FDA-Public Use
  Company Number: GB-TEVA-2020-GB-1198175

PATIENT
  Age: 80 Year
  Sex: Female

DRUGS (7)
  1. WARFARIN [Suspect]
     Active Substance: WARFARIN
     Indication: ATRIAL FIBRILLATION
     Route: 065
  2. RUCAPARIB [Suspect]
     Active Substance: RUCAPARIB
     Indication: ATRIAL FIBRILLATION
     Dosage: 1200 MILLIGRAM
     Route: 065
     Dates: start: 20200130
  3. METFORMIN [Concomitant]
     Active Substance: METFORMIN HYDROCHLORIDE
  4. GAVISCON [Concomitant]
     Active Substance: ALUMINUM HYDROXIDE\MAGNESIUM CARBONATE
  5. MIRABEGRON [Concomitant]
     Active Substance: MIRABEGRON
  6. PAROXETINE. [Concomitant]
     Active Substance: PAROXETINE
  7. BISOPROLOL [Concomitant]
     Active Substance: BISOPROLOL

REACTIONS (2)
  - Rectal haemorrhage [Recovering/Resolving]
  - International normalised ratio increased [Unknown]

NARRATIVE: CASE EVENT DATE: 20200216
